FAERS Safety Report 8851723 (Version 1)
Quarter: 2012Q4

REPORT INFORMATION
  Report Type: 
  Country: US (occurrence: US)
  Receive Date: 20121022
  Receipt Date: 20121022
  Transmission Date: 20130627
  Serious: No
  Sender: FDA-Public Use
  Company Number: US-PFIZER INC-2012259336

PATIENT
  Age: 76 Year
  Sex: Female
  Weight: 77.1 kg

DRUGS (1)
  1. LYRICA [Suspect]
     Indication: PAIN
     Dosage: 50 mg, 3x/day
     Dates: start: 201210, end: 20121014

REACTIONS (5)
  - Vision blurred [Not Recovered/Not Resolved]
  - Weight increased [Not Recovered/Not Resolved]
  - Muscle spasms [Not Recovered/Not Resolved]
  - Pain in extremity [Not Recovered/Not Resolved]
  - Arthralgia [Not Recovered/Not Resolved]
